FAERS Safety Report 4326378-5 (Version None)
Quarter: 2004Q1

REPORT INFORMATION
  Report Type: 
  Country: None (occurrence: None)
  Receive Date: 20040329
  Receipt Date: 20040329
  Transmission Date: 20041129
  Serious: Yes (Death, Other)
  Sender: FDA-Public Use
  Company Number: None

PATIENT
  Age: 58 Year
  Sex: Female

DRUGS (1)
  1. DROTRECOGIN ALFA [Suspect]

REACTIONS (8)
  - CARDIAC FAILURE [None]
  - CARDIOGENIC SHOCK [None]
  - COAGULOPATHY [None]
  - GASTROINTESTINAL HAEMORRHAGE [None]
  - MULTI-ORGAN FAILURE [None]
  - RENAL FAILURE [None]
  - RESPIRATORY FAILURE [None]
  - SKIN DISORDER [None]
